FAERS Safety Report 20538312 (Version 1)
Quarter: 2022Q1

REPORT INFORMATION
  Report Type: Spontaneous
  Country: PL (occurrence: PL)
  Receive Date: 20220302
  Receipt Date: 20220302
  Transmission Date: 20220424
  Serious: Yes (Hospitalization)
  Sender: FDA-Public Use
  Company Number: None

PATIENT
  Age: 51 Year
  Sex: Female
  Weight: 80 kg

DRUGS (4)
  1. RISPERDAL [Suspect]
     Active Substance: RISPERIDONE
     Indication: Suicide attempt
     Route: 048
     Dates: start: 20210204, end: 20210204
  2. HYDROXYZINE [Suspect]
     Active Substance: HYDROXYZINE HYDROCHLORIDE
     Indication: Suicide attempt
     Route: 048
     Dates: start: 20210204, end: 20210204
  3. METFORMIN [Suspect]
     Active Substance: METFORMIN HYDROCHLORIDE
     Indication: Suicide attempt
     Route: 048
     Dates: start: 20210204, end: 20210204
  4. RAMIPRIL [Suspect]
     Active Substance: RAMIPRIL
     Indication: Suicide attempt
     Route: 048
     Dates: start: 20210204, end: 20210204

REACTIONS (3)
  - Metabolic acidosis [Unknown]
  - Suicide attempt [Unknown]
  - Anxiety [Unknown]
